FAERS Safety Report 7534751-7 (Version None)
Quarter: 2011Q2

REPORT INFORMATION
  Report Type: 
  Country: None (occurrence: None)
  Receive Date: 20110609
  Receipt Date: 20080725
  Transmission Date: 20111010
  Serious: Yes (Other)
  Sender: FDA-Public Use
  Company Number: PHHY2008IE10333

PATIENT
  Sex: Male

DRUGS (1)
  1. CLOZAPINE [Suspect]
     Indication: SCHIZOPHRENIA
     Dosage: 300 MG, UNK
     Dates: start: 20030429

REACTIONS (10)
  - BLOOD UREA INCREASED [None]
  - NAUSEA [None]
  - BLOOD CREATINE PHOSPHOKINASE INCREASED [None]
  - BLOOD CREATININE INCREASED [None]
  - BLOOD ELECTROLYTES ABNORMAL [None]
  - BLOOD BILIRUBIN INCREASED [None]
  - DEHYDRATION [None]
  - VOMITING [None]
  - BLOOD ALBUMIN INCREASED [None]
  - HELICOBACTER INFECTION [None]
